FAERS Safety Report 8811411 (Version 1)
Quarter: 2012Q4

REPORT INFORMATION
  Report Type: Spontaneous
  Country: JP (occurrence: None)
  Receive Date: 20120924
  Receipt Date: 20120924
  Transmission Date: 20130627
  Serious: Yes (Other)
  Sender: FDA-Public Use
  Company Number: JP-2012-16288

PATIENT

DRUGS (1)
  1. SAMSCA [Suspect]
     Route: 051

REACTIONS (1)
  - Sepsis [None]
